FAERS Safety Report 21203622 (Version 1)
Quarter: 2022Q3

REPORT INFORMATION
  Report Type: Spontaneous
  Country: US (occurrence: US)
  Receive Date: 20220811
  Receipt Date: 20220811
  Transmission Date: 20221027
  Serious: Yes (Other)
  Sender: FDA-Public Use
  Company Number: US-SCALL-2022-US-018971

PATIENT
  Age: 69 Year
  Sex: Female

DRUGS (10)
  1. CARVEDILOL [Suspect]
     Active Substance: CARVEDILOL
     Indication: Hypertension
     Dosage: 6.25 MG, 1 TABLET IN THE MORNING AND BED TIME
     Route: 065
  2. PHENYTOIN [Concomitant]
     Active Substance: PHENYTOIN
     Indication: Product use in unapproved indication
     Dosage: 100 MG, ONE TABLET IN THE MORNING AND BEDTIME
  3. AMITRIPTYLINE [Concomitant]
     Active Substance: AMITRIPTYLINE
     Indication: Product used for unknown indication
     Dosage: 75 MG, ONE TABLET AT BEDTIME
     Route: 065
  4. OMEPRAZOLE [Concomitant]
     Active Substance: OMEPRAZOLE
     Indication: Product used for unknown indication
     Dosage: 40 MG, ONE TABLET IN THE MORNING
     Route: 065
  5. DULOXETINE [Suspect]
     Active Substance: DULOXETINE
     Indication: Product use in unapproved indication
     Dosage: 60 MG, ONE CAPSULE IN THE MORNING
     Route: 065
  6. HYDROXYZINE [Suspect]
     Active Substance: HYDROXYZINE HYDROCHLORIDE
     Indication: Product used for unknown indication
     Dosage: 50 MG 1 TABLET AT BED TIME
     Route: 065
  7. GABAPENTIN [Concomitant]
     Active Substance: GABAPENTIN
     Indication: Product use in unapproved indication
     Dosage: 100 MG, ONE CAPSULE IN THE MORNING, EVENING AND BEDTIME
     Route: 065
  8. TRAMADOL [Suspect]
     Active Substance: TRAMADOL
     Indication: Product used for unknown indication
     Dosage: 50 MG, ONE TABLET IN THE MORNING, EVENING AND BEDTIME
     Route: 065
  9. PREGABALIN [Concomitant]
     Active Substance: PREGABALIN
     Indication: Product use in unapproved indication
     Dosage: 150 MG CAPSULE IN THE MORNING AND EVENING
     Route: 065
  10. ATORVASTATIN [Concomitant]
     Active Substance: ATORVASTATIN
     Indication: Product use in unapproved indication
     Dosage: 40 MG, ONE TABLET IN THE MORNING

REACTIONS (2)
  - Drug interaction [Recovered/Resolved]
  - Pain [Recovered/Resolved]
